FAERS Safety Report 10871146 (Version 1)
Quarter: 2015Q1

REPORT INFORMATION
  Report Type: Spontaneous
  Country: FR (occurrence: FR)
  Receive Date: 20150226
  Receipt Date: 20150226
  Transmission Date: 20150721
  Serious: Yes (Life-Threatening, Hospitalization)
  Sender: FDA-Public Use
  Company Number: FR-ELI_LILLY_AND_COMPANY-FR201502007353

PATIENT
  Age: 95 Year
  Sex: Female

DRUGS (10)
  1. CYMBALTA [Suspect]
     Active Substance: DULOXETINE HYDROCHLORIDE
     Indication: PAIN
     Dosage: UNK
     Dates: start: 20141202, end: 20141205
  2. TRAMADOL                           /00599202/ [Suspect]
     Active Substance: TRAMADOL
     Indication: PAIN
     Dosage: UNK, OTHER: 5 DROPS EVERY 6 HOURS
     Route: 048
     Dates: start: 20141202
  3. INEXIUM                            /01479302/ [Concomitant]
     Active Substance: ESOMEPRAZOLE MAGNESIUM
     Indication: PRODUCT USED FOR UNKNOWN INDICATION
     Dosage: 20 MG, QD
     Route: 065
  4. TANGANIL                           /00129601/ [Concomitant]
     Indication: VERTIGO
     Dosage: 1500 MG, QD
     Route: 065
     Dates: start: 201401
  5. DUPHALAC [Concomitant]
     Active Substance: LACTULOSE
     Indication: PRODUCT USED FOR UNKNOWN INDICATION
     Dosage: 10 G, EACH MORNING
     Route: 065
  6. VERSATIS [Concomitant]
     Active Substance: LIDOCAINE
     Indication: POST HERPETIC NEURALGIA
     Dosage: UNK, UNKNOWN
     Route: 065
     Dates: start: 20141202
  7. LYRICA [Suspect]
     Active Substance: PREGABALIN
     Indication: PAIN
     Dosage: 25 MG, TID
     Route: 048
     Dates: start: 20141202, end: 20141205
  8. PREVISCAN                          /00261401/ [Concomitant]
     Active Substance: PENTOXIFYLLINE
     Dosage: UNK, QD (1/2 TAB)
     Route: 065
     Dates: start: 20141201, end: 20141203
  9. TRIATEC                            /00116401/ [Concomitant]
     Active Substance: HYDROCHLOROTHIAZIDE
     Indication: HYPERTENSION
     Dosage: 2.5 MG, QD
     Route: 065
     Dates: start: 2013
  10. PREVISCAN                          /00261401/ [Concomitant]
     Active Substance: PENTOXIFYLLINE
     Indication: ARRHYTHMIA
     Dosage: UNK UNK, QD (1/4 TAB IN THE EVENING AND 1/2 TAB THE NEXT DAY)
     Dates: start: 2013, end: 20141130

REACTIONS (1)
  - Angioedema [Recovered/Resolved]

NARRATIVE: CASE EVENT DATE: 20141205
